FAERS Safety Report 22332029 (Version 1)
Quarter: 2023Q2

REPORT INFORMATION
  Report Type: Spontaneous
  Country: GB (occurrence: GB)
  Receive Date: 20230517
  Receipt Date: 20230517
  Transmission Date: 20230721
  Serious: Yes (Hospitalization)
  Sender: FDA-Public Use
  Company Number: None

PATIENT
  Age: 62 Year
  Sex: Male
  Weight: 76 kg

DRUGS (7)
  1. OMEPRAZOLE [Suspect]
     Active Substance: OMEPRAZOLE
     Dosage: 20MG ONCE A DAY; ;
     Dates: start: 20220414, end: 20230425
  2. CETUXIMAB [Concomitant]
     Active Substance: CETUXIMAB
  3. DOCUSATE [Concomitant]
     Active Substance: DOCUSATE
  4. FLUOROURACIL [Concomitant]
     Active Substance: FLUOROURACIL
  5. LORAZEPAM [Concomitant]
     Active Substance: LORAZEPAM
  6. MINOCYCLINE [Concomitant]
     Active Substance: MINOCYCLINE HYDROCHLORIDE
  7. ACETAMINOPHEN [Concomitant]
     Active Substance: ACETAMINOPHEN

REACTIONS (1)
  - Hypomagnesaemia [Recovering/Resolving]

NARRATIVE: CASE EVENT DATE: 20230425
